FAERS Safety Report 7290604-3 (Version None)
Quarter: 2011Q1

REPORT INFORMATION
  Report Type: 
  Country: None (occurrence: None)
  Receive Date: 20110209
  Receipt Date: 20110209
  Transmission Date: 20110831
  Serious: Yes (Other)
  Sender: FDA-Public Use
  Company Number: None

PATIENT
  Sex: Male
  Weight: 90 kg

DRUGS (4)
  1. LORAZEPAM [Suspect]
     Indication: OBSESSIVE-COMPULSIVE DISORDER
     Dosage: 2MG ONCE A DAY AT BEDTIME MOUTH; 1/2MG 2 X DAILY AS NEEDED MOUTH
     Dates: start: 20110116
  2. LORAZEPAM [Suspect]
     Indication: ANXIETY
     Dosage: 2MG ONCE A DAY AT BEDTIME MOUTH; 1/2MG 2 X DAILY AS NEEDED MOUTH
     Dates: start: 20110116
  3. LORAZEPAM [Suspect]
     Indication: OBSESSIVE-COMPULSIVE DISORDER
     Dosage: 2MG ONCE A DAY AT BEDTIME MOUTH; 1/2MG 2 X DAILY AS NEEDED MOUTH
     Dates: start: 20101216
  4. LORAZEPAM [Suspect]
     Indication: ANXIETY
     Dosage: 2MG ONCE A DAY AT BEDTIME MOUTH; 1/2MG 2 X DAILY AS NEEDED MOUTH
     Dates: start: 20101216

REACTIONS (4)
  - ANXIETY [None]
  - PARAESTHESIA [None]
  - PRODUCT SUBSTITUTION ISSUE [None]
  - PRODUCT FORMULATION ISSUE [None]
